FAERS Safety Report 17186366 (Version 2)
Quarter: 2020Q1

REPORT INFORMATION
  Report Type: Spontaneous
  Country: US (occurrence: US)
  Receive Date: 20191220
  Receipt Date: 20200128
  Transmission Date: 20200409
  Serious: Yes (Death)
  Sender: FDA-Public Use
  Company Number: US-FARMAPROD-201912-2044

PATIENT
  Age: 59 Year
  Sex: Female

DRUGS (21)
  1. VITAMIN D3 [Concomitant]
     Active Substance: CHOLECALCIFEROL
  2. OXERVATE [Suspect]
     Active Substance: CENEGERMIN-BKBJ
     Indication: ULCERATIVE KERATITIS
     Route: 047
     Dates: start: 20191002, end: 201912
  3. BIOTIN [Concomitant]
     Active Substance: BIOTIN
  4. ZOLPIDEM [Concomitant]
     Active Substance: ZOLPIDEM TARTRATE
  5. RENA- VITE [Concomitant]
  6. FOLIC ACID. [Concomitant]
     Active Substance: FOLIC ACID
  7. SENSIPAR [Concomitant]
     Active Substance: CINACALCET HYDROCHLORIDE
  8. VITAMINE C [Concomitant]
     Active Substance: ASCORBIC ACID
  9. VITAMIN B [Concomitant]
     Active Substance: VITAMIN B
  10. IRON [Concomitant]
     Active Substance: IRON
  11. CLONAZEPAM. [Concomitant]
     Active Substance: CLONAZEPAM
  12. OXYCODONE [Concomitant]
     Active Substance: OXYCODONE
  13. PREMARIN [Concomitant]
     Active Substance: ESTROGENS, CONJUGATED
  14. VITAMINE A [Concomitant]
     Active Substance: RETINOL
  15. HUMULIN INSULIN [Concomitant]
     Active Substance: INSULIN HUMAN
  16. OMEPRAZOLE. [Concomitant]
     Active Substance: OMEPRAZOLE
  17. TRAMADOL. [Concomitant]
     Active Substance: TRAMADOL
  18. VITAMIN K [Concomitant]
     Active Substance: PHYTONADIONE
  19. VITAMIN B12 [Concomitant]
     Active Substance: CYANOCOBALAMIN
  20. HYDROXYZINE [Concomitant]
     Active Substance: HYDROXYZINE HYDROCHLORIDE
  21. LABETALOL [Concomitant]
     Active Substance: LABETALOL\LABETALOL HYDROCHLORIDE

REACTIONS (1)
  - Death [Fatal]

NARRATIVE: CASE EVENT DATE: 20191218
